FAERS Safety Report 22595393 (Version 1)
Quarter: 2023Q2

REPORT INFORMATION
  Report Type: Spontaneous
  Country: US (occurrence: US)
  Receive Date: 20230613
  Receipt Date: 20230613
  Transmission Date: 20230721
  Serious: No
  Sender: FDA-Public Use
  Company Number: US-ABBVIE-5283437

PATIENT
  Age: 87 Year
  Sex: Female
  Weight: 50.802 kg

DRUGS (2)
  1. CREON [Suspect]
     Active Substance: PANCRELIPASE AMYLASE\PANCRELIPASE LIPASE\PANCRELIPASE PROTEASE
     Indication: Pancreatic carcinoma
     Dosage: FREQUENCY TEXT: 2 CAPS PER MEALS 1 W/ SNACK (MAX 8 CAPS)?FORM STRENGTH: 24000 UNIT
     Route: 048
     Dates: start: 2008, end: 2016
  2. CREON [Suspect]
     Active Substance: PANCRELIPASE AMYLASE\PANCRELIPASE LIPASE\PANCRELIPASE PROTEASE
     Indication: Pancreatic carcinoma
     Dosage: FREQUENCY TEXT: 2 CAPS PER MEALS 1 W/ SNACK (MAX 8 CAPS)?FORM STRENGTH: 36000 UNIT
     Route: 048
     Dates: start: 2016

REACTIONS (4)
  - Fall [Recovered/Resolved]
  - Muscle strain [Recovered/Resolved]
  - Joint injury [Recovered/Resolved]
  - Wound haemorrhage [Recovered/Resolved]

NARRATIVE: CASE EVENT DATE: 20230603
